FAERS Safety Report 19940643 (Version 1)
Quarter: 2021Q4

REPORT INFORMATION
  Report Type: Spontaneous
  Country: ES (occurrence: ES)
  Receive Date: 20211011
  Receipt Date: 20211011
  Transmission Date: 20220303
  Serious: Yes (Other)
  Sender: FDA-Public Use
  Company Number: ES-PFIZER INC-2021668639

PATIENT
  Age: 30 Year
  Sex: Male

DRUGS (6)
  1. METHOTREXATE [Suspect]
     Active Substance: METHOTREXATE
     Indication: Psoriatic arthropathy
     Dosage: 7.5 MILLIGRAM, QW
     Route: 048
     Dates: start: 199902, end: 2001
  2. INDOMETHACIN [Concomitant]
     Active Substance: INDOMETHACIN
     Indication: Psoriatic arthropathy
     Dosage: 150 MILLIGRAM, QD
     Route: 065
     Dates: start: 199902
  3. INDOMETHACIN [Concomitant]
     Active Substance: INDOMETHACIN
     Dosage: 100 MILLIGRAM, QD
     Dates: start: 1994
  4. DEFLAZACORT [Concomitant]
     Active Substance: DEFLAZACORT
     Indication: Psoriatic arthropathy
     Dosage: 9 MILLIGRAM, QD
     Route: 065
     Dates: start: 199902
  5. FOLATE SODIUM [Concomitant]
     Active Substance: FOLATE SODIUM
     Indication: Psoriatic arthropathy
     Dosage: UNK
     Route: 065
     Dates: start: 199902
  6. FOLATE SODIUM [Concomitant]
     Active Substance: FOLATE SODIUM
     Indication: Supplementation therapy

REACTIONS (3)
  - Erectile dysfunction [Recovered/Resolved]
  - Breast enlargement [Recovered/Resolved]
  - Gynaecomastia [Recovered/Resolved]

NARRATIVE: CASE EVENT DATE: 20010101
